FAERS Safety Report 12181332 (Version 1)
Quarter: 2016Q1

REPORT INFORMATION
  Report Type: Spontaneous
  Country: US (occurrence: US)
  Receive Date: 20160315
  Receipt Date: 20160315
  Transmission Date: 20160526
  Serious: Yes (Hospitalization)
  Sender: FDA-Public Use
  Company Number: US-SA-2016SA051478

PATIENT
  Age: 69 Year
  Sex: Female
  Weight: 88.45 kg

DRUGS (10)
  1. ASPIRIN. [Concomitant]
     Active Substance: ASPIRIN
     Dates: start: 20160209
  2. LANTUS [Concomitant]
     Active Substance: INSULIN GLARGINE
  3. NORVASC [Concomitant]
     Active Substance: AMLODIPINE BESYLATE
  4. PLAVIX [Suspect]
     Active Substance: CLOPIDOGREL BISULFATE
     Indication: CARDIOVASCULAR EVENT PROPHYLAXIS
     Route: 048
  5. HUMALOG [Concomitant]
     Active Substance: INSULIN LISPRO
  6. METOPROLOL. [Concomitant]
     Active Substance: METOPROLOL
     Dosage: 150 MCG
  7. LEVOTHYROXINE. [Concomitant]
     Active Substance: LEVOTHYROXINE
  8. ELIQUIS [Concomitant]
     Active Substance: APIXABAN
     Dates: start: 20160209
  9. BYDUREON [Concomitant]
     Active Substance: EXENATIDE
  10. CYMBALTA [Concomitant]
     Active Substance: DULOXETINE HYDROCHLORIDE

REACTIONS (5)
  - Heart rate increased [Unknown]
  - Heart valve replacement [Unknown]
  - Atrial fibrillation [Unknown]
  - Sinus arrhythmia [Recovered/Resolved]
  - Stent placement [Unknown]

NARRATIVE: CASE EVENT DATE: 201602
